FAERS Safety Report 6279169-2 (Version None)
Quarter: 2009Q3

REPORT INFORMATION
  Report Type: 
  Country: None (occurrence: None)
  Receive Date: 20090723
  Receipt Date: 20090713
  Transmission Date: 20100115
  Serious: Yes (Death)
  Sender: FDA-Public Use
  Company Number: US-ROCHE-643816

PATIENT
  Age: 33 Year
  Sex: Male

DRUGS (1)
  1. CELLCEPT [Suspect]
     Dosage: OTHER INDICATION: KIDNEY DISORDER
     Route: 065

REACTIONS (1)
  - DEATH [None]
